FAERS Safety Report 9361099 (Version 2)
Quarter: 2013Q3

REPORT INFORMATION
  Report Type: Report from Study
  Country: US (occurrence: US)
  Receive Date: 20130621
  Receipt Date: 20130821
  Transmission Date: 20140515
  Serious: Yes (Death, Other)
  Sender: FDA-Public Use
  Company Number: US-PURDUE-USA-2013-0103566

PATIENT
  Age: 57 Year
  Sex: Female
  Weight: 43.6 kg

DRUGS (2)
  1. OXYCONTIN (NDA 22-272) [Suspect]
     Indication: PRODUCT USED FOR UNKNOWN INDICATION
     Dosage: 20 MG, BID
     Route: 048
  2. OXYCONTIN (NDA 22-272) [Suspect]
     Dosage: 30 MG, UNK
     Route: 048
     Dates: start: 201210

REACTIONS (5)
  - Breast cancer [Fatal]
  - Cardiac failure [Unknown]
  - Blood potassium decreased [Unknown]
  - Cerebrovascular accident [Unknown]
  - Convulsion [Unknown]
